FAERS Safety Report 6570491-9 (Version None)
Quarter: 2010Q1

REPORT INFORMATION
  Report Type: 
  Country: None (occurrence: None)
  Receive Date: 20100204
  Receipt Date: 20090930
  Transmission Date: 20100710
  Serious: No
  Sender: FDA-Public Use
  Company Number: A0809770A

PATIENT
  Sex: Male

DRUGS (1)
  1. ARIXTRA [Suspect]
     Indication: CORONARY ARTERY OCCLUSION
     Dosage: 10MG UNKNOWN
     Route: 065
     Dates: start: 20090901

REACTIONS (1)
  - THERAPEUTIC RESPONSE UNEXPECTED [None]
